FAERS Safety Report 6527363-5 (Version None)
Quarter: 2010Q1

REPORT INFORMATION
  Report Type: 
  Country: None (occurrence: None)
  Receive Date: 20100105
  Receipt Date: 20091229
  Transmission Date: 20100710
  Serious: Yes (Hospitalization, Other)
  Sender: FDA-Public Use
  Company Number: NZ-ROXANE LABORATORIES, INC.-2009-RO-01294RO

PATIENT
  Age: 49 Year
  Sex: Female

DRUGS (4)
  1. DIAZEPAM [Suspect]
  2. GEE'S COUGH LINCTUS [Suspect]
     Dosage: 200 ML
     Route: 048
  3. DOTHIEPIN HYDROCHLORIDE [Suspect]
  4. METHYLPREDNISOLONE [Concomitant]
     Route: 042

REACTIONS (9)
  - ABDOMINAL PAIN [None]
  - BLOOD CREATINE PHOSPHOKINASE INCREASED [None]
  - CARDIOTOXICITY [None]
  - CONDUCTION DISORDER [None]
  - DEPRESSION [None]
  - DRUG DEPENDENCE [None]
  - MYOPATHY [None]
  - NERVE COMPRESSION [None]
  - URINARY RETENTION [None]
